FAERS Safety Report 8587587-2 (Version None)
Quarter: 2012Q3

REPORT INFORMATION
  Report Type: 
  Country: None (occurrence: None)
  Receive Date: 20120810
  Receipt Date: 20120730
  Transmission Date: 20120928
  Serious: No
  Sender: FDA-Public Use
  Company Number: US-009507513-1207USA013123

PATIENT

DRUGS (7)
  1. SINGULAIR [Suspect]
     Indication: ASTHMA
     Dosage: UNK
     Route: 048
     Dates: start: 20120625
  2. SINGULAIR [Suspect]
     Indication: HYPERSENSITIVITY
  3. PULMICORT [Concomitant]
  4. NEXIUM [Concomitant]
     Route: 048
  5. LOSARTAN POTASSIUM [Concomitant]
  6. GLIMEPIRIDE [Concomitant]
  7. ATENOLOL [Concomitant]

REACTIONS (1)
  - ABDOMINAL DISCOMFORT [None]
